FAERS Safety Report 15813400 (Version 1)
Quarter: 2019Q1

REPORT INFORMATION
  Report Type: Spontaneous
  Country: CH (occurrence: CH)
  Receive Date: 20190111
  Receipt Date: 20190111
  Transmission Date: 20190417
  Serious: Yes (Death, Life-Threatening, Hospitalization)
  Sender: FDA-Public Use
  Company Number: CH-009507513-1901CHE003103

PATIENT
  Age: 78 Year
  Sex: Female

DRUGS (3)
  1. VELMETIA [Suspect]
     Active Substance: METFORMIN\SITAGLIPTIN
     Indication: TYPE 2 DIABETES MELLITUS
     Dosage: 25/500 MG
     Dates: end: 201810
  2. VELMETIA [Suspect]
     Active Substance: METFORMIN\SITAGLIPTIN
     Dosage: 50/1000 MG
     Dates: start: 201810, end: 20181112
  3. DIAMICRON [Concomitant]
     Active Substance: GLICLAZIDE
     Dosage: UNK
     Dates: end: 20181112

REACTIONS (1)
  - Lactic acidosis [Fatal]
